FAERS Safety Report 7291630-0 (Version None)
Quarter: 2011Q1

REPORT INFORMATION
  Report Type: 
  Country: None (occurrence: None)
  Receive Date: 20110214
  Receipt Date: 20110204
  Transmission Date: 20110831
  Serious: Yes (Other)
  Sender: FDA-Public Use
  Company Number: CA-JNJFOC-20110202215

PATIENT
  Sex: Female
  Weight: 81 kg

DRUGS (3)
  1. REMICADE [Suspect]
     Indication: COLITIS ULCERATIVE
     Route: 042
  2. ANTIBIOTIC [Suspect]
     Indication: LARYNGITIS
     Route: 065
  3. REMICADE [Suspect]
     Route: 042

REACTIONS (5)
  - SINUSITIS [None]
  - FALL [None]
  - GASTROINTESTINAL HAEMORRHAGE [None]
  - DIZZINESS [None]
  - LARYNGITIS [None]
